FAERS Safety Report 15190151 (Version 1)
Quarter: 2018Q3

REPORT INFORMATION
  Report Type: Report from Study
  Country: US (occurrence: US)
  Receive Date: 20180724
  Receipt Date: 20180724
  Transmission Date: 20181010
  Serious: Yes (Other)
  Sender: FDA-Public Use
  Company Number: US-BAYER-2018-136047

PATIENT
  Age: 71 Year
  Sex: Female

DRUGS (7)
  1. CHLORTHALIDONE. [Concomitant]
     Active Substance: CHLORTHALIDONE
  2. CIPRO [Concomitant]
     Active Substance: CIPROFLOXACIN HYDROCHLORIDE
  3. COMPAZINE [Concomitant]
     Active Substance: PROCHLORPERAZINE MALEATE
  4. XANAX [Concomitant]
     Active Substance: ALPRAZOLAM
  5. STIVARGA [Suspect]
     Active Substance: REGORAFENIB
     Dosage: DAILY DOSE, 160 MG
     Route: 048
     Dates: start: 20180515, end: 2018
  6. OMEPRAZOLE. [Concomitant]
     Active Substance: OMEPRAZOLE
  7. LISINOPRIL. [Concomitant]
     Active Substance: LISINOPRIL

REACTIONS (2)
  - Viral infection [None]
  - Renal impairment [None]

NARRATIVE: CASE EVENT DATE: 2018
